FAERS Safety Report 6325791-4 (Version None)
Quarter: 2009Q3

REPORT INFORMATION
  Report Type: 
  Country: None (occurrence: None)
  Receive Date: 20090824
  Receipt Date: 20090716
  Transmission Date: 20100115
  Serious: No
  Sender: FDA-Public Use
  Company Number: US-ABBOTT-09P-163-0586018-00

PATIENT
  Sex: Female
  Weight: 79.45 kg

DRUGS (2)
  1. NIASPAN [Suspect]
     Indication: BLOOD CHOLESTEROL INCREASED
     Route: 048
     Dates: start: 20090707
  2. UNKNOWN ANTI-ACID MEDICATION [Concomitant]
     Indication: HIATUS HERNIA
     Route: 048

REACTIONS (4)
  - DYSPNOEA [None]
  - GENERALISED ERYTHEMA [None]
  - HEART RATE INCREASED [None]
  - PRURITUS [None]
